FAERS Safety Report 9759552 (Version 1)
Quarter: 2013Q4

REPORT INFORMATION
  Report Type: Spontaneous
  Country: US (occurrence: US)
  Receive Date: 20131216
  Receipt Date: 20131216
  Transmission Date: 20140711
  Serious: No
  Sender: FDA-Public Use
  Company Number: US-GILEAD-2010-0028032

PATIENT
  Sex: Female
  Weight: 71.21 kg

DRUGS (20)
  1. LETAIRIS [Suspect]
     Indication: PULMONARY ARTERIAL HYPERTENSION
     Route: 048
     Dates: start: 20090512
  2. COUMADIN [Concomitant]
  3. ASPIRIN [Concomitant]
  4. LOPRESSOR [Concomitant]
  5. CALAN SR [Concomitant]
  6. CARDIZEM [Concomitant]
  7. TRENTAL [Concomitant]
  8. PREDNISONE [Concomitant]
  9. PULMOCORT [Concomitant]
  10. ZOLOFT [Concomitant]
  11. ELAVIL [Concomitant]
  12. PRILOSEC [Concomitant]
  13. XANAX [Concomitant]
  14. AMBIEN [Concomitant]
  15. SYNTHROID [Concomitant]
  16. BACTRIM DS [Concomitant]
  17. FLOMAX [Concomitant]
  18. FOSAMAX [Concomitant]
  19. CALTRATE W/D [Concomitant]
  20. CENTRUM SLIVER [Concomitant]

REACTIONS (1)
  - Pneumonia [Unknown]
